FAERS Safety Report 5813354-6 (Version None)
Quarter: 2008Q3

REPORT INFORMATION
  Report Type: 
  Country: None (occurrence: None)
  Receive Date: 20080716
  Receipt Date: 20080709
  Transmission Date: 20090109
  Serious: No
  Sender: FDA-Public Use
  Company Number: APP200800560

PATIENT
  Sex: Female

DRUGS (1)
  1. HEPARIN SODIUM INJECTION [Suspect]
     Indication: THROMBOSIS PROPHYLAXIS
     Dates: start: 20071201, end: 20071201

REACTIONS (5)
  - INFLAMMATION [None]
  - PAIN OF SKIN [None]
  - PRURITUS [None]
  - RASH [None]
  - SWELLING [None]
